FAERS Safety Report 12546519 (Version 1)
Quarter: 2016Q3

REPORT INFORMATION
  Report Type: Spontaneous
  Country: US (occurrence: US)
  Receive Date: 20160711
  Receipt Date: 20160711
  Transmission Date: 20161109
  Serious: Yes (Other)
  Sender: FDA-Public Use
  Company Number: US-ACTAVIS-2016-15172

PATIENT
  Age: 52 Year
  Sex: Female

DRUGS (1)
  1. ZOLEDRONIC ACID (ACTAVIS LLC) [Suspect]
     Active Substance: ZOLEDRONIC ACID
     Indication: OSTEOPOROSIS
     Dosage: UNK
     Route: 065

REACTIONS (2)
  - Renal tubular necrosis [Unknown]
  - Acute kidney injury [Unknown]
